FAERS Safety Report 16342044 (Version 1)
Quarter: 2019Q2

REPORT INFORMATION
  Report Type: Spontaneous
  Country: DE (occurrence: DE)
  Receive Date: 20190522
  Receipt Date: 20190522
  Transmission Date: 20190711
  Serious: Yes (Other)
  Sender: FDA-Public Use
  Company Number: DE-AUROBINDO-AUR-APL-2019-026652

PATIENT

DRUGS (3)
  1. MYLEPSINUM [Interacting]
     Active Substance: PRIMIDONE
     Indication: EPILEPSY
     Dosage: UNK
     Route: 048
     Dates: start: 1961
  2. FLEBOGAMMA [Interacting]
     Active Substance: HUMAN IMMUNOGLOBULIN G
     Indication: NEURITIS
     Dosage: 2000 MILLILITER, 1 MONTH,2000 ML, Q.M.T.
     Route: 042
     Dates: start: 2017, end: 2017
  3. TOPIRAMATE. [Suspect]
     Active Substance: TOPIRAMATE
     Indication: PRODUCT USED FOR UNKNOWN INDICATION
     Dosage: UNK
     Route: 048
     Dates: start: 2008

REACTIONS (6)
  - Dry skin [Not Recovered/Not Resolved]
  - Pruritus [Unknown]
  - Acarodermatitis [Unknown]
  - Skin exfoliation [Recovered/Resolved with Sequelae]
  - Arthralgia [Not Recovered/Not Resolved]
  - Drug interaction [Unknown]

NARRATIVE: CASE EVENT DATE: 2017
